FAERS Safety Report 16391466 (Version 1)
Quarter: 2019Q2

REPORT INFORMATION
  Report Type: Spontaneous
  Country: US (occurrence: US)
  Receive Date: 20190605
  Receipt Date: 20190605
  Transmission Date: 20190711
  Serious: No
  Sender: FDA-Public Use
  Company Number: US-JNJFOC-20190531099

PATIENT
  Sex: Female
  Weight: 73.03 kg

DRUGS (2)
  1. TYLENOL 8 HR ARTHRITIS PAIN [Suspect]
     Active Substance: ACETAMINOPHEN
     Route: 048
  2. TYLENOL 8 HR ARTHRITIS PAIN [Suspect]
     Active Substance: ACETAMINOPHEN
     Indication: ARTHRITIS
     Dosage: AT NIGHT (WAS CUT IN HALF AND BOTH HALVES TAKEN)
     Route: 048
     Dates: start: 20190521

REACTIONS (1)
  - Wrong technique in product usage process [Unknown]
